FAERS Safety Report 8231025-6 (Version None)
Quarter: 2012Q1

REPORT INFORMATION
  Report Type: 
  Country: None (occurrence: None)
  Receive Date: 20120323
  Receipt Date: 20120319
  Transmission Date: 20120608
  Serious: Yes (Hospitalization)
  Sender: FDA-Public Use
  Company Number: DE-PFIZER INC-2012071630

PATIENT
  Age: 4 Day
  Sex: Female
  Weight: 2.67 kg

DRUGS (1)
  1. SUMATRIPTAN SUCCINATE [Suspect]
     Route: 064

REACTIONS (3)
  - APNOEA [None]
  - BRADYCARDIA [None]
  - MATERNAL EXPOSURE TIMING UNSPECIFIED [None]
